FAERS Safety Report 15562667 (Version 1)
Quarter: 2018Q4

REPORT INFORMATION
  Report Type: Spontaneous
  Country: AU (occurrence: AU)
  Receive Date: 20181029
  Receipt Date: 20181029
  Transmission Date: 20190205
  Serious: Yes (Other)
  Sender: FDA-Public Use
  Company Number: AU-LPDUSPRD-20181978

PATIENT
  Age: 37 Year
  Sex: Female

DRUGS (1)
  1. FERINJECT [Suspect]
     Active Substance: FERRIC CARBOXYMALTOSE
     Dosage: 1 GM
     Route: 041
     Dates: start: 20180514

REACTIONS (4)
  - Dyspnoea [Unknown]
  - Flushing [Unknown]
  - Dizziness [Unknown]
  - Hypoaesthesia [Unknown]

NARRATIVE: CASE EVENT DATE: 20180514
